FAERS Safety Report 8180930-8 (Version None)
Quarter: 2012Q1

REPORT INFORMATION
  Report Type: 
  Country: None (occurrence: None)
  Receive Date: 20120229
  Receipt Date: 20120220
  Transmission Date: 20120608
  Serious: Yes (Other)
  Sender: FDA-Public Use
  Company Number: 2012SP009250

PATIENT
  Age: 46 Year
  Sex: Female
  Weight: 69 kg

DRUGS (7)
  1. TORADOL [Concomitant]
  2. WELLBUTRIN [Concomitant]
  3. QUIETAPINE [Concomitant]
  4. LYRICA [Concomitant]
  5. PEGINTERFERON ALFA-2B W/RIBAVIRIN (PEGYLATED INTERFERON ALFA-2B W/RIBA [Suspect]
     Indication: HEPATITIS C
     Dosage: 100 MCG;QW;SC 1000 MG;PO
     Route: 048
     Dates: start: 20110103, end: 20111108
  6. PEGINTERFERON ALFA-2B W/RIBAVIRIN (PEGYLATED INTERFERON ALFA-2B W/RIBA [Suspect]
     Indication: HEPATITIS C
     Dosage: 100 MCG;QW;SC 1000 MG;PO
     Route: 048
     Dates: start: 20110103, end: 20111108
  7. TRAZODONE HCL [Concomitant]

REACTIONS (2)
  - BREAST INFECTION [None]
  - BREAST CYST [None]
